FAERS Safety Report 19505791 (Version 1)
Quarter: 2021Q3

REPORT INFORMATION
  Report Type: Spontaneous
  Country: US (occurrence: US)
  Receive Date: 20210708
  Receipt Date: 20210708
  Transmission Date: 20211014
  Serious: No
  Sender: FDA-Public Use
  Company Number: US-SUN PHARMACEUTICAL INDUSTRIES LTD-2020R1-264307

PATIENT
  Sex: Male

DRUGS (2)
  1. TESTOSTERONE. [Suspect]
     Active Substance: TESTOSTERONE
     Dosage: 1 MILLILITER, 1 DOSE/3 WEEKS
     Route: 030
  2. TESTOSTERONE. [Suspect]
     Active Substance: TESTOSTERONE
     Indication: KLINEFELTER^S SYNDROME
     Dosage: 1 MILLILITER, 1 DOSE/3 WEEKS
     Route: 030

REACTIONS (5)
  - Red blood cell count increased [Unknown]
  - Therapeutic response decreased [Unknown]
  - Asthenia [Unknown]
  - Liquid product physical issue [Unknown]
  - Emotional distress [Unknown]
